FAERS Safety Report 7700175-2 (Version None)
Quarter: 2011Q3

REPORT INFORMATION
  Report Type: 
  Country: None (occurrence: None)
  Receive Date: 20110822
  Receipt Date: 20110818
  Transmission Date: 20111222
  Serious: No
  Sender: FDA-Public Use
  Company Number: US-PFIZER INC-2011192339

PATIENT
  Sex: Female
  Weight: 53.968 kg

DRUGS (7)
  1. TOPAMAX [Concomitant]
     Indication: MIGRAINE
     Dosage: 50 MG, 1X/DAY
     Route: 048
  2. VICODIN [Suspect]
     Indication: NEURALGIA
     Dosage: 10MG/660MG  EVERY 6 HOURS
     Route: 048
  3. ADVIL LIQUI-GELS [Concomitant]
     Indication: PAIN
     Dosage: UNK
     Route: 048
  4. LEXAPRO [Concomitant]
     Dosage: 5 MG, DAILY
  5. ALENDRONATE SODIUM [Concomitant]
     Dosage: 70 MG, WEEKLY
  6. NEURONTIN [Suspect]
     Indication: PAIN
     Dosage: 100 MG, 3X/DAY
     Route: 048
     Dates: start: 20110810
  7. OMEPRAZOLE [Concomitant]
     Dosage: 40 MG, 2X/DAY

REACTIONS (4)
  - BACK PAIN [None]
  - CONSTIPATION [None]
  - MUSCLE SPASMS [None]
  - FLATULENCE [None]
